FAERS Safety Report 4741103-1 (Version None)
Quarter: 2005Q3

REPORT INFORMATION
  Report Type: 
  Country: None (occurrence: None)
  Receive Date: 20050808
  Receipt Date: 20050725
  Transmission Date: 20060218
  Serious: Yes (Death)
  Sender: FDA-Public Use
  Company Number: 2005106461

PATIENT
  Age: 82 Year
  Sex: Female

DRUGS (1)
  1. ALPRAZOLAM [Suspect]
     Indication: ANXIETY
     Dosage: (0.5 MG, DAILY)
     Dates: end: 19900101

REACTIONS (2)
  - DRUG INEFFECTIVE [None]
  - HALLUCINATION [None]
